FAERS Safety Report 17752883 (Version 1)
Quarter: 2020Q2

REPORT INFORMATION
  Report Type: Spontaneous
  Country: US (occurrence: US)
  Receive Date: 20200506
  Receipt Date: 20200506
  Transmission Date: 20200714
  Serious: No
  Sender: FDA-Public Use
  Company Number: US-ROCHE-2470603

PATIENT
  Sex: Male

DRUGS (3)
  1. COLESTID [Concomitant]
     Active Substance: COLESTIPOL HYDROCHLORIDE
  2. ESBRIET [Suspect]
     Active Substance: PIRFENIDONE
     Indication: IDIOPATHIC PULMONARY FIBROSIS
     Dosage: TAKE 1 TABLET 3 TIMES A DAY FOR A WEEK, THEN 2 TABLETS 3 TIMES A DAY FOR NEXT WEEK, THEN 3 TABLETS 3
     Route: 065
  3. LOMOTIL [Concomitant]
     Active Substance: ATROPINE SULFATE\DIPHENOXYLATE HYDROCHLORIDE

REACTIONS (1)
  - Gastrooesophageal reflux disease [Not Recovered/Not Resolved]
